FAERS Safety Report 5275749-1 (Version None)
Quarter: 2007Q1

REPORT INFORMATION
  Report Type: 
  Country: None (occurrence: None)
  Receive Date: 20061213
  Receipt Date: 20040511
  Transmission Date: 20070707
  Serious: No
  Sender: FDA-Public Use
  Company Number: 2004UW03807

PATIENT
  Age: 45 Year
  Sex: Female

DRUGS (24)
  1. SEROQUEL [Suspect]
     Indication: BIPOLAR DISORDER
     Dosage: 25-50 MG DAILY
     Dates: start: 20020629, end: 20020901
  2. SEROQUEL [Suspect]
     Indication: BIPOLAR DISORDER
     Dosage: 100 MG DAILY PO
     Route: 048
     Dates: start: 20020930, end: 20040201
  3. SEROQUEL [Suspect]
     Indication: BIPOLAR DISORDER
     Dates: start: 20040101, end: 20040323
  4. ACCOLATE [Concomitant]
  5. ALLEGRA [Concomitant]
  6. BUMEX [Concomitant]
  7. INNOHEP [Concomitant]
  8. POTASSIUM ACETATE [Concomitant]
  9. LEXAPRO [Concomitant]
  10. BEXTRA [Concomitant]
  11. THYROID TAB [Concomitant]
  12. CONCERTA [Concomitant]
  13. KLONOPIN [Concomitant]
  14. PAXIL [Concomitant]
  15. TRILEPTAL [Concomitant]
  16. AMBIEN [Concomitant]
  17. REMINYL [Concomitant]
  18. GEODON [Concomitant]
  19. TOPAMAX [Concomitant]
  20. RESTORIL [Concomitant]
  21. ZANAFLEX [Concomitant]
  22. ZOLOFT [Concomitant]
  23. CELEXA [Concomitant]
  24. TYLENOL W/ CODEINE NO. 3 [Concomitant]

REACTIONS (1)
  - CATARACT [None]
